FAERS Safety Report 13381569 (Version 2)
Quarter: 2017Q2

REPORT INFORMATION
  Report Type: Spontaneous
  Country: US (occurrence: US)
  Receive Date: 20170329
  Receipt Date: 20170525
  Transmission Date: 20170830
  Serious: No
  Sender: FDA-Public Use
  Company Number: US-ALLERGAN-1709985US

PATIENT
  Age: 57 Year
  Sex: Female

DRUGS (1)
  1. VIIBRYD [Suspect]
     Active Substance: VILAZODONE HYDROCHLORIDE
     Indication: MOOD ALTERED
     Dosage: 20 MG, QAM
     Route: 048
     Dates: start: 20170425

REACTIONS (1)
  - No adverse event [Unknown]
